FAERS Safety Report 9329277 (Version 1)
Quarter: 2013Q2

REPORT INFORMATION
  Report Type: Spontaneous
  Country: US (occurrence: US)
  Receive Date: 20130604
  Receipt Date: 20130604
  Transmission Date: 20140414
  Serious: Yes (Other)
  Sender: FDA-Public Use
  Company Number: US-SANOFI-AVENTIS-2012SA081523

PATIENT
  Age: 52 Year
  Sex: Male

DRUGS (5)
  1. LANTUS [Suspect]
     Indication: DIABETES MELLITUS
     Dosage: DOSE:17 UNIT(S)
     Route: 058
     Dates: start: 2004
  2. LANTUS [Suspect]
     Indication: DIABETES MELLITUS
     Dosage: 2 UNITS IN THE MORNING AND 4 UNITS AT NIGHT
     Route: 058
  3. LANTUS [Suspect]
     Indication: DIABETES MELLITUS
     Dosage: 2 UNITS IN THE MORNING AND 4 UNITS AT NIGHT
     Route: 058
  4. HUMALOG [Concomitant]
     Route: 065
  5. HUMALOG [Concomitant]
     Route: 065

REACTIONS (4)
  - Hypoglycaemic unconsciousness [Recovered/Resolved]
  - Hypoglycaemia [Recovered/Resolved]
  - Dizziness [Recovered/Resolved]
  - Blood glucose increased [Recovering/Resolving]
